FAERS Safety Report 5734135-8 (Version None)
Quarter: 2008Q2

REPORT INFORMATION
  Report Type: 
  Country: None (occurrence: None)
  Receive Date: 20080509
  Receipt Date: 20080505
  Transmission Date: 20081010
  Serious: Yes (Other)
  Sender: FDA-Public Use
  Company Number: GB-PFIZER INC-2008039169

PATIENT
  Sex: Female

DRUGS (2)
  1. NICOTINE [Suspect]
     Dates: start: 20080301
  2. NICOTINE [Suspect]
     Dosage: TEXT:PATCH
     Route: 062

REACTIONS (4)
  - CHEST PAIN [None]
  - INTENTIONAL DRUG MISUSE [None]
  - PAIN IN EXTREMITY [None]
  - PANIC REACTION [None]
